FAERS Safety Report 8789129 (Version 1)
Quarter: 2012Q4

REPORT INFORMATION
  Report Type: Spontaneous
  Country: US (occurrence: None)
  Receive Date: 20120910
  Receipt Date: 20120910
  Transmission Date: 20130627
  Serious: Yes (Hospitalization, Other)
  Sender: FDA-Public Use
  Company Number: None

PATIENT
  Sex: Female
  Weight: 63.5 kg

DRUGS (2)
  1. CREON [Suspect]
     Indication: PANCREATITIS
     Dosage: 6,000, 12,000 OR 24,000 WITH MEDS WITH SNACKS
(STILL WITH INCREASE BP + JT- MUSCLE PAIN
     Dates: start: 201104, end: 201206
  2. CREON [Suspect]
     Indication: WHIPPLE^S OPERATION
     Dosage: 6,000, 12,000 OR 24,000 WITH MEDS WITH SNACKS
(STILL WITH INCREASE BP + JT- MUSCLE PAIN
     Dates: start: 201104, end: 201206

REACTIONS (5)
  - PANCREATIC PAIN [None]
  - Dyspnoea [None]
  - Myalgia [None]
  - Constipation [None]
  - Abdominal distension [None]
